FAERS Safety Report 4440539-6 (Version None)
Quarter: 2004Q3

REPORT INFORMATION
  Report Type: 
  Country: None (occurrence: None)
  Receive Date: 20040831
  Receipt Date: 20040615
  Transmission Date: 20050211
  Serious: Yes (Hospitalization)
  Sender: FDA-Public Use
  Company Number: US013326

PATIENT
  Age: 39 Year
  Sex: Male
  Weight: 127.0072 kg

DRUGS (4)
  1. GABITRIL [Suspect]
     Indication: HEADACHE
     Dosage: 80 MG ONCE ORAL
     Route: 048
     Dates: start: 20040608, end: 20040608
  2. NEXIUM [Concomitant]
  3. NORVASC [Concomitant]
  4. LESCOL [Concomitant]

REACTIONS (6)
  - ACCIDENTAL OVERDOSE [None]
  - BALANCE DISORDER [None]
  - ENCEPHALOPATHY [None]
  - FATIGUE [None]
  - GRAND MAL CONVULSION [None]
  - SOMNOLENCE [None]
